FAERS Safety Report 21099977 (Version 1)
Quarter: 2022Q3

REPORT INFORMATION
  Report Type: Spontaneous
  Country: US (occurrence: None)
  Receive Date: 20220719
  Receipt Date: 20220719
  Transmission Date: 20221027
  Serious: Yes (Hospitalization)
  Sender: FDA-Public Use
  Company Number: None

PATIENT
  Age: 45 Year
  Sex: Female

DRUGS (1)
  1. ICATIBANT ACETATE [Suspect]
     Active Substance: ICATIBANT ACETATE
     Indication: Hereditary angioedema
     Dosage: FREQUENCY : AS NEEDED;  AS NESSARY?
     Route: 058
     Dates: start: 20210101

REACTIONS (2)
  - Pharyngeal swelling [None]
  - Drug ineffective [None]

NARRATIVE: CASE EVENT DATE: 20220717
